FAERS Safety Report 6207354-4 (Version None)
Quarter: 2009Q2

REPORT INFORMATION
  Report Type: 
  Country: None (occurrence: None)
  Receive Date: 20090528
  Receipt Date: 20090516
  Transmission Date: 20091009
  Serious: Yes (Other)
  Sender: FDA-Public Use
  Company Number: US-PFIZER INC-2009194396

PATIENT
  Sex: Female

DRUGS (5)
  1. LYRICA [Suspect]
     Indication: OCCIPITAL NEURALGIA
     Dosage: 200 MG, 1X/DAY
     Route: 048
     Dates: start: 20090216, end: 20090324
  2. TOPAMAX [Concomitant]
     Dosage: UNK
     Route: 048
  3. ZANAFLEX [Concomitant]
     Dosage: UNK
     Route: 048
  4. OXYCONTIN [Concomitant]
     Dosage: UNK
     Route: 048
  5. PERCOCET [Concomitant]
     Dosage: UNK
     Route: 048

REACTIONS (5)
  - ANXIETY [None]
  - CRYING [None]
  - PANIC ATTACK [None]
  - PROCEDURAL PAIN [None]
  - SURGERY [None]
